FAERS Safety Report 7333469-3 (Version None)
Quarter: 2011Q1

REPORT INFORMATION
  Report Type: 
  Country: None (occurrence: None)
  Receive Date: 20110304
  Receipt Date: 20110228
  Transmission Date: 20110831
  Serious: Yes (Death)
  Sender: FDA-Public Use
  Company Number: US-GENENTECH-312383

PATIENT
  Sex: Male
  Weight: 73 kg

DRUGS (5)
  1. ACTIVASE [Suspect]
     Indication: THROMBOSIS
     Dosage: 1 MG/HR, CONTINUOUS
     Route: 042
     Dates: start: 20101022
  2. ACTIVASE [Suspect]
     Dosage: 0.50 MG/HR, CONTINUOUS
     Route: 042
     Dates: end: 20101024
  3. HEPARIN [Concomitant]
     Indication: PRODUCT USED FOR UNKNOWN INDICATION
     Dosage: 400 UNK, UNK
     Dates: start: 20101022, end: 20101024
  4. ACTIVASE [Suspect]
     Dosage: 0.75 MG/HR, CONTINUOUS
     Route: 042
     Dates: start: 20101023
  5. AMICAR [Concomitant]
     Indication: PRODUCT USED FOR UNKNOWN INDICATION
     Dosage: UNK
     Dates: start: 20101025

REACTIONS (1)
  - DISSEMINATED INTRAVASCULAR COAGULATION [None]
